FAERS Safety Report 5749326-X (Version None)
Quarter: 2008Q2

REPORT INFORMATION
  Report Type: 
  Country: None (occurrence: None)
  Receive Date: 20080527
  Receipt Date: 20080521
  Transmission Date: 20081010
  Serious: Yes (Hospitalization)
  Sender: FDA-Public Use
  Company Number: ES-AVENTIS-200811789EU

PATIENT
  Age: 52 Year
  Sex: Male

DRUGS (9)
  1. CLEXANE [Suspect]
     Route: 058
     Dates: start: 20080307
  2. HEPARIN SODIUM [Suspect]
     Indication: HAEMODIALYSIS
     Dates: start: 20080307, end: 20080307
  3. ENALAPRIL MALEATE [Suspect]
     Indication: HYPERTENSION
     Route: 048
     Dates: start: 20070206
  4. NON-MEDICATION THERAPY [Suspect]
     Indication: HAEMODIALYSIS
     Dates: start: 20080307, end: 20080307
  5. ARANESP [Concomitant]
     Route: 058
     Dates: start: 20071030
  6. FERROSANOL [Concomitant]
     Route: 048
  7. MASTICAL [Concomitant]
     Route: 048
  8. NEO-URGENIN [Concomitant]
     Route: 048
  9. RESINCALCIO [Concomitant]
     Route: 048

REACTIONS (4)
  - DIARRHOEA [None]
  - HYPOTENSION [None]
  - NAUSEA [None]
  - VOMITING [None]
